FAERS Safety Report 4357028-X (Version None)
Quarter: 2004Q2

REPORT INFORMATION
  Report Type: 
  Country: None (occurrence: None)
  Receive Date: 20040512
  Receipt Date: 20010618
  Transmission Date: 20050107
  Serious: Yes (Other)
  Sender: FDA-Public Use
  Company Number: US-GLAXOSMITHKLINE-A0349629A

PATIENT
  Age: 59 Year
  Sex: Female
  Weight: 90.7 kg

DRUGS (5)
  1. AVANDIA [Suspect]
     Dosage: 8MG PER DAY
     Route: 048
     Dates: start: 20010301, end: 20010427
  2. NORVASC [Concomitant]
  3. ALLEGRA [Concomitant]
  4. DIOVAN [Concomitant]
  5. GLUCOPHAGE [Concomitant]

REACTIONS (6)
  - EXCORIATION [None]
  - LACERATION [None]
  - LOCAL SWELLING [None]
  - PSORIASIS [None]
  - SKIN FISSURES [None]
  - SUICIDAL IDEATION [None]
